FAERS Safety Report 6037814-0 (Version None)
Quarter: 2009Q1

REPORT INFORMATION
  Report Type: 
  Country: None (occurrence: None)
  Receive Date: 20090113
  Receipt Date: 20081230
  Transmission Date: 20090719
  Serious: Yes (Hospitalization, Other)
  Sender: FDA-Public Use
  Company Number: 100#03#2009-00038

PATIENT
  Age: 47 Year
  Sex: Female

DRUGS (7)
  1. SERTRALINE [Suspect]
     Indication: DEPRESSION
     Dosage: 200 MG, QD  ORAL
     Route: 048
  2. CLOZARIL [Suspect]
     Indication: SCHIZOPHRENIA
     Dosage: 150 MG, BID ORAL
     Route: 048
     Dates: start: 20080909
  3. LAMOTRIGINE [Concomitant]
  4. DEPAKOTE [Concomitant]
  5. QUETIAPINE FUMARATE [Concomitant]
  6. CLONAZEPAM [Concomitant]
  7. SERETIDE (FLUTICASONE PROPIONATE, SALMETEROL XINAFOATE) [Concomitant]

REACTIONS (4)
  - CARDIOMYOPATHY [None]
  - LOWER RESPIRATORY TRACT INFECTION [None]
  - TACHYCARDIA [None]
  - TACHYPNOEA [None]
